FAERS Safety Report 24918593 (Version 2)
Quarter: 2025Q1

REPORT INFORMATION
  Report Type: Report from Study
  Country: US (occurrence: US)
  Receive Date: 20250203
  Receipt Date: 20250212
  Transmission Date: 20250408
  Serious: Yes (Other)
  Sender: ABBVIE
  Company Number: US-ABBVIE-6109153

PATIENT
  Age: 54 Year
  Sex: Female
  Weight: 64.8 kg

DRUGS (10)
  1. RINVOQ [Suspect]
     Active Substance: UPADACITINIB
     Indication: Rheumatoid arthritis
     Dosage: UNKNOWN
     Route: 048
     Dates: start: 20210212, end: 202311
  2. Diclofenac Acid [Concomitant]
     Indication: Pain
  3. GABAPENTIN [Concomitant]
     Active Substance: GABAPENTIN
     Indication: Neuralgia
  4. NAPROXEN [Concomitant]
     Active Substance: NAPROXEN
     Indication: Rheumatoid arthritis
  5. ENBREL [Suspect]
     Active Substance: ETANERCEPT
     Indication: Rheumatoid arthritis
  6. GENTAMICIN [Concomitant]
     Active Substance: GENTAMICIN
     Indication: Limb injury
  7. CLOBETASOL [Concomitant]
     Active Substance: CLOBETASOL
     Indication: Wound infection
  8. LOSARTAN POTASSIUM [Concomitant]
     Active Substance: LOSARTAN POTASSIUM
     Indication: Blood pressure measurement
  9. PREDNISONE [Concomitant]
     Active Substance: PREDNISONE
     Indication: Rheumatoid arthritis
  10. ESTRADIOL [Concomitant]
     Active Substance: ESTRADIOL
     Indication: Vulvovaginal pruritus

REACTIONS (12)
  - Ankle arthroplasty [Unknown]
  - Rheumatoid arthritis [Not Recovered/Not Resolved]
  - Pruritus [Recovered/Resolved]
  - Rash [Recovered/Resolved]
  - Wound dehiscence [Recovering/Resolving]
  - Joint swelling [Recovered/Resolved]
  - Wound infection [Not Recovered/Not Resolved]
  - Skin ulcer [Unknown]
  - Impaired healing [Unknown]
  - Hip arthroplasty [Unknown]
  - Limb injury [Not Recovered/Not Resolved]
  - Arthralgia [Recovered/Resolved]

NARRATIVE: CASE EVENT DATE: 20230801
